FAERS Safety Report 9790028 (Version 3)
Quarter: 2014Q1

REPORT INFORMATION
  Report Type: Spontaneous
  Country: US (occurrence: US)
  Receive Date: 20131231
  Receipt Date: 20140123
  Transmission Date: 20141002
  Serious: Yes (Hospitalization, Other)
  Sender: FDA-Public Use
  Company Number: US-JNJFOC-20131214946

PATIENT
  Age: 72 Year
  Sex: Female
  Weight: 74.39 kg

DRUGS (6)
  1. XARELTO [Suspect]
     Indication: CEREBROVASCULAR ACCIDENT PROPHYLAXIS
     Route: 048
     Dates: start: 20131009, end: 20131028
  2. XARELTO [Suspect]
     Indication: ATRIAL FIBRILLATION
     Route: 048
     Dates: start: 20131009, end: 20131028
  3. BETAPACE [Concomitant]
     Indication: HEART RATE
     Route: 065
  4. MORPHINE [Concomitant]
     Indication: INTERVERTEBRAL DISC DEGENERATION
     Route: 065
  5. DOXEPIN [Concomitant]
     Indication: SLEEP DISORDER
     Route: 065
  6. METOPROLOL [Concomitant]
     Indication: HEART RATE
     Route: 065

REACTIONS (8)
  - Haemorrhage subcutaneous [Recovered/Resolved]
  - Cerebrovascular accident [Unknown]
  - Atrial fibrillation [Unknown]
  - Overdose [Unknown]
  - Muscle oedema [Unknown]
  - Myalgia [Unknown]
  - Incorrect dose administered [Unknown]
  - Inappropriate schedule of drug administration [Unknown]
